FAERS Safety Report 7432495-3 (Version None)
Quarter: 2011Q2

REPORT INFORMATION
  Report Type: 
  Country: None (occurrence: None)
  Receive Date: 20110422
  Receipt Date: 20110408
  Transmission Date: 20111010
  Serious: No
  Sender: FDA-Public Use
  Company Number: US-B.I. PHARMACEUTICALS,INC./RIDGEFIELD-2011-BP-10434BP

PATIENT
  Age: 70 Year
  Sex: Male

DRUGS (9)
  1. MULTI-VITAMIN [Concomitant]
     Indication: PROPHYLAXIS
     Route: 048
     Dates: start: 19860101
  2. VITAMIN E [Concomitant]
     Indication: PROPHYLAXIS
     Route: 048
     Dates: start: 19860101
  3. GLUCOSAMINE CHONDROITIN [Concomitant]
     Indication: PROPHYLAXIS
     Route: 048
     Dates: start: 19860101
  4. ASCORBIC ACID [Concomitant]
     Indication: PROPHYLAXIS
     Route: 048
     Dates: start: 19860101
  5. GINGO BILOBOA [Concomitant]
     Indication: PROPHYLAXIS
     Route: 048
     Dates: start: 19860101
  6. CALCIUM [Concomitant]
     Indication: PROPHYLAXIS
     Route: 048
     Dates: start: 19860101
  7. SAW PALMETTO [Concomitant]
     Indication: PROPHYLAXIS
     Route: 048
     Dates: start: 19860101
  8. PRADAXA [Suspect]
     Indication: ATRIAL FIBRILLATION
     Dosage: 300 MG
     Route: 048
     Dates: start: 20110318
  9. BETACAROTENE [Concomitant]
     Indication: PROPHYLAXIS
     Route: 048
     Dates: start: 19860101

REACTIONS (2)
  - ABDOMINAL DISCOMFORT [None]
  - FLATULENCE [None]
